FAERS Safety Report 22139768 (Version 1)
Quarter: 2023Q1

REPORT INFORMATION
  Report Type: Spontaneous
  Country: US (occurrence: US)
  Receive Date: 20230327
  Receipt Date: 20230327
  Transmission Date: 20230417
  Serious: Yes (Death)
  Sender: FDA-Public Use
  Company Number: US-Vifor (International) Inc.-VIT-2023-02066

PATIENT
  Age: 68 Year
  Sex: Male
  Weight: 96 kg

DRUGS (4)
  1. MIRCERA [Suspect]
     Active Substance: METHOXY POLYETHYLENE GLYCOL-EPOETIN BETA
     Indication: Nephrogenic anaemia
     Dosage: FIRST DOSE, FREQUENCY: ONCE
     Route: 040
     Dates: start: 20230211, end: 20230211
  2. MIRCERA [Suspect]
     Active Substance: METHOXY POLYETHYLENE GLYCOL-EPOETIN BETA
     Dosage: AT 16:02, FREQUENCY: ONCE
     Route: 040
     Dates: start: 20230304, end: 20230304
  3. VENOFER [Suspect]
     Active Substance: IRON SUCROSE
     Indication: Product used for unknown indication
     Route: 042
  4. CALCITRIOL [Concomitant]
     Active Substance: CALCITRIOL

REACTIONS (9)
  - Drug hypersensitivity [Fatal]
  - Lip swelling [Fatal]
  - Pruritus [Fatal]
  - Dyspnoea [Fatal]
  - Blood pressure decreased [Fatal]
  - Heart rate increased [Fatal]
  - Pulse absent [Fatal]
  - COVID-19 [Unknown]
  - Tachycardia [Unknown]

NARRATIVE: CASE EVENT DATE: 20230211
